FAERS Safety Report 20675407 (Version 2)
Quarter: 2022Q4

REPORT INFORMATION
  Report Type: Report from Study
  Country: US (occurrence: US)
  Receive Date: 20220405
  Receipt Date: 20221214
  Transmission Date: 20230113
  Serious: Yes (Hospitalization, Other)
  Sender: FDA-Public Use
  Company Number: US-JAZZ-2022-US-010437

PATIENT
  Age: 49 Year
  Sex: Female

DRUGS (10)
  1. XYREM [Suspect]
     Active Substance: SODIUM OXYBATE
     Indication: Narcolepsy
     Dosage: 2.25 GRAM, BID
     Route: 048
     Dates: start: 202112, end: 202112
  2. XYREM [Suspect]
     Active Substance: SODIUM OXYBATE
     Indication: Cataplexy
     Dosage: DOSE ADJUSTMENT
     Route: 048
     Dates: start: 202112, end: 202203
  3. XYREM [Suspect]
     Active Substance: SODIUM OXYBATE
     Indication: Somnolence
     Dosage: 3 GRAM AT BEDTIME AND 3.5 GRAM BID
     Route: 048
     Dates: start: 202203
  4. DROSPIRENONE [Concomitant]
     Active Substance: DROSPIRENONE
     Dosage: 3-0.02 MILLIGRAM
     Dates: start: 20211226
  5. FLUTICASONE PROPIONATE [Concomitant]
     Active Substance: FLUTICASONE PROPIONATE
     Dosage: 0000
     Dates: start: 20220103
  6. CYMBALTA [Concomitant]
     Active Substance: DULOXETINE HYDROCHLORIDE
     Dosage: 0000
     Dates: start: 20220316
  7. MONTELUKAST SODIUM [Concomitant]
     Active Substance: MONTELUKAST SODIUM
     Dosage: 0000
     Dates: start: 20220331
  8. IPRATROPIUM BROMIDE AND ALBUTEROL SULFATE [Concomitant]
     Active Substance: ALBUTEROL SULFATE\IPRATROPIUM BROMIDE
     Dosage: 0.5-3(2.5) MG/3 ML
     Dates: start: 20220301
  9. ZYRTEC [Concomitant]
     Active Substance: CETIRIZINE HYDROCHLORIDE
     Dosage: 0000
     Dates: start: 20220328
  10. VITAMIN D2 [Concomitant]
     Active Substance: ERGOCALCIFEROL
     Dosage: 0000
     Dates: start: 20220326

REACTIONS (7)
  - Bronchitis [Not Recovered/Not Resolved]
  - Sinus operation [Unknown]
  - Vitamin D decreased [Unknown]
  - Bronchial secretion retention [Unknown]
  - Pruritus [Unknown]
  - Pharyngitis streptococcal [Unknown]
  - Liver disorder [Unknown]

NARRATIVE: CASE EVENT DATE: 20220201
